FAERS Safety Report 6539729-8 (Version None)
Quarter: 2010Q1

REPORT INFORMATION
  Report Type: 
  Country: None (occurrence: None)
  Receive Date: 20100115
  Receipt Date: 20091202
  Transmission Date: 20100710
  Serious: Yes (Hospitalization)
  Sender: FDA-Public Use
  Company Number: JP-MERCK-0912USA00984

PATIENT
  Age: 67 Year
  Sex: Male

DRUGS (8)
  1. FOSAMAX [Suspect]
     Indication: OSTEOPOROSIS
     Route: 048
     Dates: end: 20080513
  2. PREDNISOLONE [Concomitant]
     Route: 048
  3. SHINLUCK [Concomitant]
     Route: 048
  4. VASOTEC [Concomitant]
     Route: 048
  5. LASIX [Concomitant]
     Route: 048
  6. PRAVASTATIN SODIUM [Concomitant]
     Indication: HYPERLIPIDAEMIA
     Route: 048
  7. MAGNESIUM OXIDE [Concomitant]
     Route: 048
  8. HUMULIN R [Concomitant]
     Indication: DIABETES MELLITUS
     Route: 048

REACTIONS (2)
  - CELLULITIS [None]
  - OSTEOMYELITIS [None]
